FAERS Safety Report 9367767 (Version 1)
Quarter: 2013Q2

REPORT INFORMATION
  Report Type: Spontaneous
  Country: US (occurrence: US)
  Receive Date: 20130625
  Receipt Date: 20130625
  Transmission Date: 20140414
  Serious: No
  Sender: FDA-Public Use
  Company Number: US-ASTELLAS-2012US007963

PATIENT
  Age: 68 Year
  Sex: Male

DRUGS (2)
  1. VESICARE [Suspect]
     Indication: PRODUCT USED FOR UNKNOWN INDICATION
     Dosage: 5 MG, UNKNOWN/D
     Route: 048
     Dates: start: 20120912, end: 20120914
  2. VESICARE [Suspect]
     Dosage: 5 MG, UNKNOWN/D
     Route: 048
     Dates: start: 20120917

REACTIONS (6)
  - Accidental overdose [Unknown]
  - Back pain [Unknown]
  - Groin pain [Unknown]
  - Flank pain [Unknown]
  - Abdominal pain [Unknown]
  - Constipation [Recovered/Resolved]
